FAERS Safety Report 8324780-8 (Version None)
Quarter: 2012Q2

REPORT INFORMATION
  Report Type: 
  Country: None (occurrence: None)
  Receive Date: 20120501
  Receipt Date: 20120424
  Transmission Date: 20120825
  Serious: Yes (Other)
  Sender: FDA-Public Use
  Company Number: PHHY2012VE036079

PATIENT
  Sex: Female

DRUGS (1)
  1. ZOLEDRONOC ACID [Suspect]
     Indication: OSTEOPOROSIS
     Dosage: 5 MG, ONCE A YEAR
     Route: 042
     Dates: start: 20120419

REACTIONS (15)
  - TRANSAMINASES INCREASED [None]
  - LIMB DISCOMFORT [None]
  - CHILLS [None]
  - DECREASED APPETITE [None]
  - HEPATIC PAIN [None]
  - GINGIVAL PAIN [None]
  - PAIN [None]
  - EAR PAIN [None]
  - NAUSEA [None]
  - HEADACHE [None]
  - CHEST PAIN [None]
  - ASTHENIA [None]
  - ABDOMINAL PAIN [None]
  - BODY TEMPERATURE DECREASED [None]
  - MUSCULAR WEAKNESS [None]
